FAERS Safety Report 10686440 (Version 2)
Quarter: 2015Q1

REPORT INFORMATION
  Report Type: Report from Study
  Country: TW (occurrence: TW)
  Receive Date: 20141231
  Receipt Date: 20150107
  Transmission Date: 20150720
  Serious: Yes (Life-Threatening)
  Sender: FDA-Public Use
  Company Number: TW-ROCHE-1516149

PATIENT
  Age: 42 Year
  Sex: Female
  Weight: 54 kg

DRUGS (2)
  1. SALAZINE [Concomitant]
     Indication: RHEUMATOID ARTHRITIS
     Dosage: 2 CYCLES RECEIVED PRIOR TO SAE.
     Route: 048
     Dates: end: 20141209
  2. MABTHERA [Suspect]
     Active Substance: RITUXIMAB
     Indication: RHEUMATOID ARTHRITIS
     Dosage: LAST DOSE PRIRO TO SAE: 08/OCT/2014
     Route: 041
     Dates: start: 20140819, end: 20141008

REACTIONS (1)
  - Breast cancer metastatic [Not Recovered/Not Resolved]

NARRATIVE: CASE EVENT DATE: 20141128
